FAERS Safety Report 11273395 (Version 3)
Quarter: 2015Q3

REPORT INFORMATION
  Report Type: Spontaneous
  Country: IT (occurrence: IT)
  Receive Date: 20150715
  Receipt Date: 20150724
  Transmission Date: 20151125
  Serious: Yes (Hospitalization, Other)
  Sender: FDA-Public Use
  Company Number: IT-ASTRAZENECA-2015SE66996

PATIENT
  Age: 22256 Day
  Sex: Male

DRUGS (7)
  1. BRILIQUE [Suspect]
     Active Substance: TICAGRELOR
     Indication: ACUTE CORONARY SYNDROME
     Route: 048
     Dates: start: 20150706, end: 20150706
  2. ASA [Suspect]
     Active Substance: ASPIRIN
     Indication: ACUTE CORONARY SYNDROME
     Route: 048
     Dates: start: 20150706, end: 20150706
  3. SELOKEN [Concomitant]
     Active Substance: METOPROLOL
     Dosage: 1 MG/1 ML
     Route: 042
  4. TRIATEC [Concomitant]
     Active Substance: RAMIPRIL
     Route: 048
  5. ANTRA [Concomitant]
     Active Substance: OMEPRAZOLE
     Route: 048
  6. DILATREND [Concomitant]
     Active Substance: CARVEDILOL
     Route: 048
  7. TORVAST [Concomitant]
     Active Substance: ATORVASTATIN
     Route: 048

REACTIONS (3)
  - Gastric ulcer [Unknown]
  - Haemorrhagic anaemia [Unknown]
  - Gastric haemorrhage [Unknown]

NARRATIVE: CASE EVENT DATE: 20150706
